FAERS Safety Report 4380997-9 (Version None)
Quarter: 2004Q2

REPORT INFORMATION
  Report Type: 
  Country: None (occurrence: None)
  Receive Date: 20040614
  Receipt Date: 20040528
  Transmission Date: 20050107
  Serious: Yes (Other)
  Sender: FDA-Public Use
  Company Number: 2004-UK-00512UK

PATIENT
  Age: 83 Year
  Sex: Female

DRUGS (6)
  1. SPIRIVA [Suspect]
     Indication: CHRONIC OBSTRUCTIVE AIRWAYS DISEASE
     Dosage: 1 ANZ (18 MCG,   )
     Route: 055
     Dates: start: 20040423, end: 20040505
  2. BENDROFLUAZIDE (BENDROFLUMETHIAZIDE) [Concomitant]
  3. PARACETAMOL (PARACETAMOL) [Concomitant]
  4. BECLOMETHASONE DIPROPIONATE [Concomitant]
  5. SALBUTAMOL (SALBUTAMOL) [Concomitant]
  6. ATROVENT [Concomitant]

REACTIONS (4)
  - AMNESIA [None]
  - DIARRHOEA [None]
  - DISTURBANCE IN ATTENTION [None]
  - VISUAL DISTURBANCE [None]
